FAERS Safety Report 18238455 (Version 7)
Quarter: 2023Q4

REPORT INFORMATION
  Report Type: Report from Study
  Country: US (occurrence: US)
  Receive Date: 20200907
  Receipt Date: 20231031
  Transmission Date: 20240110
  Serious: Yes (Disabling, Other)
  Sender: FDA-Public Use
  Company Number: US-TAKEDA-2020TUS037643

PATIENT
  Sex: Female

DRUGS (1)
  1. VEDOLIZUMAB [Suspect]
     Active Substance: VEDOLIZUMAB
     Indication: Crohn^s disease
     Dosage: 300 MILLIGRAM
     Route: 042

REACTIONS (9)
  - Brain injury [Unknown]
  - Epilepsy [Unknown]
  - Neoplasm malignant [Unknown]
  - Amnesia [Unknown]
  - Full blood count decreased [Unknown]
  - Drug ineffective [Unknown]
  - Impaired work ability [Unknown]
  - Malaise [Unknown]
  - Weight decreased [Unknown]
